FAERS Safety Report 10714155 (Version 7)
Quarter: 2016Q2

REPORT INFORMATION
  Report Type: Spontaneous
  Country: US (occurrence: US)
  Receive Date: 20150115
  Receipt Date: 20160512
  Transmission Date: 20160815
  Serious: Yes (Hospitalization, Disabling, Other)
  Sender: FDA-Public Use
  Company Number: US-009507513-1109USA00175

PATIENT
  Sex: Male
  Weight: 78.5 kg

DRUGS (2)
  1. PROPECIA [Suspect]
     Active Substance: FINASTERIDE
     Indication: ALOPECIA
     Dosage: 1 MG, QD
     Route: 048
     Dates: start: 199806, end: 200303
  2. PROPECIA [Suspect]
     Active Substance: FINASTERIDE
     Dosage: 1 MG, QD
     Route: 048
     Dates: end: 2009

REACTIONS (62)
  - Genital atrophy [Unknown]
  - Soft tissue injury [Unknown]
  - Neuralgia [Unknown]
  - Scrotal cyst [Unknown]
  - Groin pain [Unknown]
  - Fatigue [Unknown]
  - Social anxiety disorder [Unknown]
  - Arterial insufficiency [Unknown]
  - Muscle strain [Unknown]
  - Suicidal ideation [Recovered/Resolved]
  - Anxiety [Not Recovered/Not Resolved]
  - Semen volume decreased [Not Recovered/Not Resolved]
  - Penis disorder [Unknown]
  - Hypogonadism [Unknown]
  - Genital hypoaesthesia [Unknown]
  - Self esteem decreased [Unknown]
  - Testicular pain [Not Recovered/Not Resolved]
  - Hydrocele [Unknown]
  - Penile size reduced [Unknown]
  - Dysuria [Unknown]
  - Male orgasmic disorder [Unknown]
  - Epididymitis [Unknown]
  - Major depression [Unknown]
  - Panic disorder [Unknown]
  - Sleep disorder [Unknown]
  - Spermatocele [Unknown]
  - Irritable bowel syndrome [Unknown]
  - Testicular failure [Unknown]
  - Orchitis [Unknown]
  - Mental disorder [Unknown]
  - Depression [Not Recovered/Not Resolved]
  - Orgasmic sensation decreased [Unknown]
  - Libido decreased [Recovering/Resolving]
  - Semen viscosity [Not Recovered/Not Resolved]
  - Cystitis interstitial [Unknown]
  - Fatigue [Unknown]
  - Ejaculation delayed [Unknown]
  - Suicide attempt [Unknown]
  - Cognitive disorder [Not Recovered/Not Resolved]
  - Prostatitis [Recovered/Resolved]
  - Feeling abnormal [Unknown]
  - Hyperhidrosis [Unknown]
  - Orgasmic sensation decreased [Unknown]
  - Adjustment disorder with anxiety [Unknown]
  - Stress at work [Unknown]
  - Urethritis [Unknown]
  - Libido decreased [Recovering/Resolving]
  - Erectile dysfunction [Recovering/Resolving]
  - Sexual dysfunction [Not Recovered/Not Resolved]
  - Scrotal disorder [Unknown]
  - Diverticulum [Unknown]
  - Diverticulitis [Unknown]
  - Anxiety [Unknown]
  - Pelvic pain [Unknown]
  - Penile pain [Unknown]
  - Homicidal ideation [Recovered/Resolved]
  - Bladder neck obstruction [Unknown]
  - Peyronie^s disease [Not Recovered/Not Resolved]
  - Vitamin D decreased [Unknown]
  - Insomnia [Unknown]
  - Infertility male [Unknown]
  - Obsessive-compulsive disorder [Unknown]

NARRATIVE: CASE EVENT DATE: 2003
